FAERS Safety Report 4698273-3 (Version None)
Quarter: 2005Q2

REPORT INFORMATION
  Report Type: 
  Country: None (occurrence: None)
  Receive Date: 20050623
  Receipt Date: 20050611
  Transmission Date: 20051028
  Serious: Yes (Death)
  Sender: FDA-Public Use
  Company Number: US-SANOFI-SYNTHELABO-A03200501770

PATIENT
  Age: 65 Year
  Sex: Female
  Weight: 56.69 kg

DRUGS (1)
  1. PLAVIX [Suspect]
     Route: 048
     Dates: start: 20030301

REACTIONS (1)
  - DEATH [None]
